FAERS Safety Report 18478360 (Version 3)
Quarter: 2021Q1

REPORT INFORMATION
  Report Type: Spontaneous
  Country: DE (occurrence: DE)
  Receive Date: 20201109
  Receipt Date: 20210209
  Transmission Date: 20210419
  Serious: Yes (Other)
  Sender: FDA-Public Use
  Company Number: DE-BEH-2020124454

PATIENT
  Age: 67 Year
  Sex: Male
  Weight: 90 kg

DRUGS (12)
  1. FOLIC ACID. [Concomitant]
     Active Substance: FOLIC ACID
     Dosage: 5 MILLIGRAM, QD
     Route: 048
  2. PANTOPRAZOLE [Concomitant]
     Active Substance: PANTOPRAZOLE
     Dosage: 40 MILLIGRAM, QD
     Route: 048
  3. VITAMIN B1 [Concomitant]
     Active Substance: THIAMINE HYDROCHLORIDE
     Dosage: 100 MILLIGRAM, QD
     Route: 048
  4. MOVICOL [Concomitant]
     Active Substance: POLYETHYLENE GLYCOL 3350\POTASSIUM CHLORIDE\SODIUM BICARBONATE\SODIUM CHLORIDE
     Dosage: 1 SACHET, QD
  5. PREGABALIN. [Suspect]
     Active Substance: PREGABALIN
     Indication: NEURALGIA
     Dosage: 400 MILLIGRAM, QD
     Route: 048
  6. PREGABALIN. [Suspect]
     Active Substance: PREGABALIN
     Dosage: 300 MILLIGRAM, QD
  7. CLEXANE [Concomitant]
     Active Substance: ENOXAPARIN SODIUM
     Dosage: 0.4 MILLILITER, QD
     Dates: start: 20190918, end: 20190920
  8. PRIVIGEN [Suspect]
     Active Substance: HUMAN IMMUNOGLOBULIN G
     Indication: POLYNEUROPATHY
     Dosage: 50 GRAM, QD (=5X10G)
     Route: 042
     Dates: start: 20190918, end: 20190920
  9. PREGABALIN. [Suspect]
     Active Substance: PREGABALIN
     Dosage: 600 MILLIGRAM, QD
     Route: 048
  10. ASPIRIN. [Concomitant]
     Active Substance: ASPIRIN
     Dosage: UNK, QD (LONG TERM MEDICATION)
  11. ASA [Concomitant]
     Active Substance: ASPIRIN
     Dosage: 100 MILLIGRAM, QD
     Route: 048
  12. NOVAMINSULFON [Suspect]
     Active Substance: METAMIZOLE
     Dosage: 500 MILLIGRAM, PRN (2 TABLETS AS NEEDED)
     Route: 048

REACTIONS (6)
  - Thrombocytopenia [Unknown]
  - No adverse event [Unknown]
  - Leukopenia [Unknown]
  - Product use in unapproved indication [Unknown]
  - Neuralgia [Recovering/Resolving]
  - Polyneuropathy [Unknown]

NARRATIVE: CASE EVENT DATE: 20190920
